FAERS Safety Report 23775110 (Version 1)
Quarter: 2024Q2

REPORT INFORMATION
  Report Type: Report from Study
  Country: US (occurrence: US)
  Receive Date: 20240423
  Receipt Date: 20240423
  Transmission Date: 20240715
  Serious: Yes (Hospitalization, Other)
  Sender: FDA-Public Use
  Company Number: US-MYLANLABS-2021M1097166

PATIENT
  Sex: Female
  Weight: 85.27 kg

DRUGS (1)
  1. GLATIRAMER ACETATE [Suspect]
     Active Substance: GLATIRAMER ACETATE
     Indication: Relapsing-remitting multiple sclerosis
     Dosage: 40 MILLIGRAM, 3XW (THREE TIMES WEEKLY)
     Route: 058

REACTIONS (11)
  - Infection [Unknown]
  - Transient ischaemic attack [Unknown]
  - Diabetes mellitus [Unknown]
  - Muscle spasms [Unknown]
  - Injection site pain [Unknown]
  - Chest pain [Unknown]
  - Injection site swelling [Recovered/Resolved]
  - Injection site pruritus [Unknown]
  - Central nervous system lesion [Unknown]
  - Memory impairment [Unknown]
  - Dizziness [Unknown]
